FAERS Safety Report 5805797-1 (Version None)
Quarter: 2008Q3

REPORT INFORMATION
  Report Type: 
  Country: None (occurrence: None)
  Receive Date: 20080710
  Receipt Date: 20080707
  Transmission Date: 20090109
  Serious: Yes (Hospitalization)
  Sender: FDA-Public Use
  Company Number: FR-ASTRAZENECA-2008CG00966

PATIENT
  Age: 28483 Day
  Sex: Male

DRUGS (10)
  1. SYMBICORT [Suspect]
     Indication: BRONCHITIS
     Dosage: 1DF BID
     Route: 055
     Dates: start: 20080301, end: 20080409
  2. PULMICORT-100 [Suspect]
     Indication: BRONCHITIS
     Route: 055
     Dates: start: 20080301, end: 20080409
  3. SANDIMMUNE [Suspect]
     Indication: IMMUNOSUPPRESSION
     Route: 048
     Dates: start: 19920101
  4. FURADANTIN [Concomitant]
     Indication: URINARY TRACT INFECTION
     Route: 048
     Dates: start: 20071001
  5. AMOXICILLIN AND CLAVULANATE POTASSIUM [Concomitant]
     Indication: BRONCHITIS
     Dates: start: 20080301
  6. AMOXICILLIN AND CLAVULANATE POTASSIUM [Concomitant]
     Indication: PYREXIA
     Dates: start: 20080301
  7. MONOTILDIEM [Concomitant]
  8. CORVASAL [Concomitant]
  9. LEVOTHYROX [Concomitant]
  10. IRBESARTAN [Concomitant]

REACTIONS (3)
  - INTENTIONAL DRUG MISUSE [None]
  - PYELONEPHRITIS [None]
  - SEPSIS [None]
